FAERS Safety Report 7008594-7 (Version None)
Quarter: 2010Q3

REPORT INFORMATION
  Report Type: 
  Country: None (occurrence: None)
  Receive Date: 20100922
  Receipt Date: 20100915
  Transmission Date: 20110219
  Serious: Yes (Other)
  Sender: FDA-Public Use
  Company Number: US-US-EMD SERONO, INC.-7017834

PATIENT
  Sex: Female

DRUGS (3)
  1. REBIF [Suspect]
     Indication: MULTIPLE SCLEROSIS
     Route: 058
     Dates: start: 20091112
  2. ALEVE (CAPLET) [Concomitant]
     Indication: PREMEDICATION
  3. UNSPECIFIED MEDICATION [Concomitant]
     Indication: HYPERTENSION

REACTIONS (9)
  - AGNOSIA [None]
  - BALANCE DISORDER [None]
  - CATARACT [None]
  - CLUMSINESS [None]
  - FATIGUE [None]
  - IMPAIRED DRIVING ABILITY [None]
  - INJECTION SITE ERYTHEMA [None]
  - INJECTION SITE PAIN [None]
  - MEMORY IMPAIRMENT [None]
